FAERS Safety Report 8623502-0 (Version None)
Quarter: 2012Q3

REPORT INFORMATION
  Report Type: 
  Country: None (occurrence: None)
  Receive Date: 20120827
  Receipt Date: 20120821
  Transmission Date: 20120928
  Serious: Yes (Hospitalization)
  Sender: FDA-Public Use
  Company Number: IT-ABBOTT-12P-083-0971417-00

PATIENT
  Sex: Male

DRUGS (3)
  1. AKINETON [Suspect]
     Indication: TREMOR
     Route: 048
     Dates: start: 20110101, end: 20120803
  2. ZYPREXA [Suspect]
     Indication: ABNORMAL BEHAVIOUR
     Route: 048
     Dates: start: 20100803, end: 20120803
  3. CHLORPROMAZINE HCL [Suspect]
     Indication: ABNORMAL BEHAVIOUR
     Route: 048
     Dates: start: 20110803, end: 20120803

REACTIONS (1)
  - JAUNDICE CHOLESTATIC [None]
